FAERS Safety Report 25347527 (Version 1)
Quarter: 2025Q2

REPORT INFORMATION
  Report Type: Spontaneous
  Country: FR (occurrence: FR)
  Receive Date: 20250522
  Receipt Date: 20250522
  Transmission Date: 20250717
  Serious: Yes (Other)
  Sender: OTSUKA
  Company Number: FR-MMM-Otsuka-S0YX527J

PATIENT
  Age: 69 Year
  Sex: Male

DRUGS (1)
  1. ABILIFY MAINTENA [Suspect]
     Active Substance: ARIPIPRAZOLE
     Indication: Product used for unknown indication
     Route: 065

REACTIONS (8)
  - Paralysis [Unknown]
  - Diplegia [Unknown]
  - Gait spastic [Unknown]
  - Anal incontinence [Unknown]
  - Sleep disorder [Recovered/Resolved]
  - Urinary incontinence [Unknown]
  - Muscle spasms [Recovered/Resolved]
  - Myalgia [Unknown]
